FAERS Safety Report 8998381 (Version 1)
Quarter: 2013Q1

REPORT INFORMATION
  Report Type: Report from Study
  Country: IE (occurrence: IE)
  Receive Date: 20130102
  Receipt Date: 20130102
  Transmission Date: 20140127
  Serious: Yes (Hospitalization)
  Sender: FDA-Public Use
  Company Number: IE-BRISTOL-MYERS SQUIBB COMPANY-14741557

PATIENT
  Age: 74 Year
  Sex: Male

DRUGS (12)
  1. DASATINIB [Suspect]
     Indication: PROSTATE CANCER
     Dosage: INTERRUPTED ON 13AUG2009; RESTARTED ON 21-AUG-2009 AT 70 MG DAILY.
     Route: 048
     Dates: start: 20090403
  2. TAXOTERE [Suspect]
     Indication: PROSTATE CANCER
     Dosage: INTERRUPTED ON 24JUL09; RESTARTED ON 21-AUG-2009 AT 60 MG/M2
     Route: 048
     Dates: start: 20090403
  3. PREDNISONE [Suspect]
     Indication: PROSTATE CANCER
     Route: 048
     Dates: start: 20090403
  4. DEXAMETHASONE [Suspect]
     Indication: PREMEDICATION
  5. ASPIRIN [Concomitant]
  6. GALFER [Concomitant]
     Dosage: 1 DF = 305 UNITS NOT PROVIDED
  7. ZOTON [Concomitant]
     Dosage: 1 DF = 30 UNITS NOT PROVIDED
  8. CYCLIZINE [Concomitant]
     Dosage: 1 DF = 50 UNITS NOT PROVIDED
  9. LIPITOR [Concomitant]
     Dosage: 1 DF = 10 UNITS NOT PROVIDED
  10. TEMAZEPAM [Concomitant]
     Dosage: 1 DF = 10 NOCTE
  11. OXYCONTIN [Concomitant]
  12. OXYNORM [Concomitant]
     Dosage: 1 DF = 5 UNITS NOT PROVIDED

REACTIONS (2)
  - Dehydration [Recovered/Resolved]
  - Diarrhoea [Recovered/Resolved]
